FAERS Safety Report 5142056-7 (Version None)
Quarter: 2006Q4

REPORT INFORMATION
  Report Type: 
  Country: None (occurrence: None)
  Receive Date: 20061102
  Receipt Date: 20061006
  Transmission Date: 20070319
  Serious: Yes (Hospitalization)
  Sender: FDA-Public Use
  Company Number: DK-AVENTIS-200620432GDDC

PATIENT
  Age: 84 Year
  Sex: Female

DRUGS (9)
  1. MINIRIN [Suspect]
     Indication: NOCTURIA
     Route: 048
     Dates: start: 20060831, end: 20060904
  2. ELTROXIN [Concomitant]
  3. MONOTRIM [Concomitant]
  4. FERRODURETTER [Concomitant]
  5. FEMANOR [Concomitant]
  6. TOLMIN [Concomitant]
  7. OXABENZ [Concomitant]
  8. SERETIDE [Concomitant]
  9. NITROMEX [Concomitant]

REACTIONS (3)
  - CONCUSSION [None]
  - FALL [None]
  - HYPONATRAEMIA [None]
